FAERS Safety Report 7578725-9 (Version None)
Quarter: 2011Q2

REPORT INFORMATION
  Report Type: 
  Country: None (occurrence: None)
  Receive Date: 20110628
  Receipt Date: 20110615
  Transmission Date: 20111010
  Serious: Yes (Death)
  Sender: FDA-Public Use
  Company Number: JP-MYLANLABS-2011S1012663

PATIENT
  Age: 71 Year
  Sex: Male

DRUGS (1)
  1. TACROLIMUS [Suspect]
     Indication: RHEUMATOID ARTHRITIS
     Dosage: 4 MG/DAY
     Route: 065

REACTIONS (3)
  - DIFFUSE ALVEOLAR DAMAGE [None]
  - PNEUMONIA [None]
  - HYPERSENSITIVITY [None]
